FAERS Safety Report 5951647-2 (Version None)
Quarter: 2008Q4

REPORT INFORMATION
  Report Type: 
  Country: None (occurrence: None)
  Receive Date: 20081113
  Receipt Date: 20081106
  Transmission Date: 20090506
  Serious: Yes (Life-Threatening, Hospitalization, Other)
  Sender: FDA-Public Use
  Company Number: NL-ABBOTT-08P-114-0483230-03

PATIENT
  Sex: Female
  Weight: 80 kg

DRUGS (22)
  1. HUMIRA [Suspect]
     Indication: RHEUMATOID ARTHRITIS
     Route: 058
     Dates: start: 20040511, end: 20081020
  2. ACETYLSALICYLIC ACID SRT [Concomitant]
     Indication: ANGINA PECTORIS
     Dates: start: 20030901
  3. ACETYLSALICYLIC ACID SRT [Concomitant]
     Indication: CARDIAC FAILURE
  4. ALENDRONATE SODIUM [Concomitant]
     Indication: OSTEOPOROSIS
     Dates: start: 20011217
  5. ACETAMINOPHEN W/ CODEINE [Concomitant]
     Indication: RHEUMATOID ARTHRITIS
     Dosage: 500/20 MG
     Dates: start: 20030901
  6. ACETAMINOPHEN W/ CODEINE [Concomitant]
     Indication: FIBROMYALGIA
  7. PROMOCARD/ISOSORBIDE [Concomitant]
     Indication: ANGINA PECTORIS
     Dates: start: 20040609
  8. PROMOCARD/ISOSORBIDE [Concomitant]
     Indication: CARDIAC FAILURE
  9. SIMVASTATIN [Concomitant]
     Indication: HYPERCHOLESTEROLAEMIA
     Dates: start: 19980501
  10. TRAMADOL HCL [Concomitant]
     Indication: RHEUMATOID ARTHRITIS
     Dates: start: 20031204
  11. FUROSEMIDE [Concomitant]
     Indication: ANGINA PECTORIS
  12. FUROSEMIDE [Concomitant]
     Indication: CARDIAC FAILURE
  13. OXAZEPAM [Concomitant]
     Indication: INSOMNIA
  14. ACETYLCYSTEINE [Concomitant]
     Indication: INCREASED BRONCHIAL SECRETION
     Dates: start: 20031205
  15. CA D3 [Concomitant]
     Indication: OSTEOPOROSIS
     Dosage: 500/440 IE
     Dates: start: 20011217
  16. PANTOPRAZOLE SODIUM [Concomitant]
     Indication: PROPHYLAXIS AGAINST GASTROINTESTINAL ULCER
  17. PERINDOPRIL [Concomitant]
     Indication: ANGINA PECTORIS
     Dates: start: 20040605
  18. PERINDOPRIL [Concomitant]
     Indication: CARDIAC FAILURE
  19. LORMETAZEPAM [Concomitant]
     Indication: INSOMNIA
  20. FLUTICASONE PROPIONATE [Concomitant]
     Indication: COUGH
  21. IPRATROPIUM BROMIDE [Concomitant]
     Indication: COUGH
  22. METHOTREXATE [Concomitant]
     Indication: RHEUMATOID ARTHRITIS
     Dates: start: 20030708, end: 20081020

REACTIONS (1)
  - LUNG NEOPLASM MALIGNANT [None]
